FAERS Safety Report 4545760-4 (Version None)
Quarter: 2005Q1

REPORT INFORMATION
  Report Type: 
  Country: None (occurrence: None)
  Receive Date: 20050103
  Receipt Date: 20041213
  Transmission Date: 20050727
  Serious: Yes (Hospitalization)
  Sender: FDA-Public Use
  Company Number: USA041081191

PATIENT
  Age: 67 Year
  Sex: Female
  Weight: 66 kg

DRUGS (11)
  1. FORTEO [Suspect]
     Indication: OSTEOPOROSIS
     Dosage: 20 UG DAY
     Dates: start: 20040920
  2. RELAFEN [Concomitant]
  3. DIOVAN [Concomitant]
  4. ATIVAN [Concomitant]
  5. LOMOTIL [Concomitant]
  6. SINGULAIR (MONTELUKAST) [Concomitant]
  7. ALLEGRA [Concomitant]
  8. CALCIUM CITRATE [Concomitant]
  9. VITAMIN E [Concomitant]
  10. GLUCOSAMINE CHONDROITIN [Concomitant]
  11. PATANOL [Concomitant]

REACTIONS (6)
  - CHOLELITHIASIS [None]
  - CONDITION AGGRAVATED [None]
  - INCISION SITE COMPLICATION [None]
  - INJECTION SITE URTICARIA [None]
  - PHARMACEUTICAL PRODUCT COMPLAINT [None]
  - POST PROCEDURAL COMPLICATION [None]
